FAERS Safety Report 22361355 (Version 1)
Quarter: 2023Q2

REPORT INFORMATION
  Report Type: Spontaneous
  Country: US (occurrence: None)
  Receive Date: 20230523
  Receipt Date: 20230523
  Transmission Date: 20230722
  Serious: Yes (unspecified)
  Sender: FDA-Public Use
  Company Number: None

PATIENT
  Age: 70 Year
  Sex: Male

DRUGS (2)
  1. HYPOCHLOROUS ACID [Suspect]
     Active Substance: HYPOCHLOROUS ACID
     Indication: Cataract operation
     Dosage: 1 GTT DROP (S) TWICE A DAY CUTANEOUS?
     Route: 003
     Dates: start: 20230502, end: 20230504
  2. OASIS TEARS PF [Suspect]
     Active Substance: GLYCERIN
     Indication: Cataract operation
     Dosage: FREQUENCY : TWICE A DAY;?
     Route: 047
     Dates: start: 20230502, end: 20230504

REACTIONS (1)
  - Uveitis [None]

NARRATIVE: CASE EVENT DATE: 20230503
